FAERS Safety Report 16766752 (Version 1)
Quarter: 2019Q3

REPORT INFORMATION
  Report Type: Spontaneous
  Country: US (occurrence: US)
  Receive Date: 20190903
  Receipt Date: 20190903
  Transmission Date: 20191005
  Serious: No
  Sender: FDA-Public Use
  Company Number: US-ASTRAZENECA-2019SF13682

PATIENT
  Sex: Female

DRUGS (1)
  1. FASENRA [Suspect]
     Active Substance: BENRALIZUMAB
     Indication: ASTHMA
     Dosage: 30 MG EVERY FOUR WEEKS FOR THE FIRST THREE DOSES FOLLOWED BY ONCE EVERY EIGHT WEEKS
     Route: 058

REACTIONS (1)
  - Dyspnoea [Unknown]
